FAERS Safety Report 8062219-0 (Version None)
Quarter: 2012Q1

REPORT INFORMATION
  Report Type: 
  Country: None (occurrence: None)
  Receive Date: 20120123
  Receipt Date: 20120109
  Transmission Date: 20120608
  Serious: Yes (Hospitalization)
  Sender: FDA-Public Use
  Company Number: FR-MYLANLABS-2012S1000481

PATIENT
  Age: 12 Year
  Sex: Male

DRUGS (37)
  1. CYTARABINE [Suspect]
     Route: 037
     Dates: start: 20111207
  2. KIDROLASE [Suspect]
     Indication: PRODUCT USED FOR UNKNOWN INDICATION
     Route: 042
     Dates: start: 20111109
  3. ELDISINE [Suspect]
     Indication: PRODUCT USED FOR UNKNOWN INDICATION
     Route: 042
     Dates: start: 20111107
  4. ETOPOSIDE [Suspect]
     Indication: PRODUCT USED FOR UNKNOWN INDICATION
     Route: 042
     Dates: start: 20111205, end: 20111220
  5. ONDANSETRON [Suspect]
     Dates: start: 20111212
  6. ONDANSETRON [Suspect]
     Dates: start: 20111219
  7. KIDROLASE [Suspect]
     Dates: start: 20111111
  8. ELDISINE [Suspect]
     Dates: start: 20111114
  9. ETOPOSIDE [Suspect]
     Dates: start: 20111212
  10. ONDANSETRON [Suspect]
     Dates: start: 20111118
  11. CYTARABINE [Suspect]
     Indication: PRODUCT USED FOR UNKNOWN INDICATION
     Route: 042
     Dates: start: 20111205, end: 20111206
  12. KIDROLASE [Suspect]
     Dates: start: 20111118
  13. DOXORUBICIN HCL [Suspect]
     Indication: PRODUCT USED FOR UNKNOWN INDICATION
     Route: 042
     Dates: start: 20111107
  14. DEXAMETHASONE [Suspect]
     Dates: start: 20111120
  15. ONDANSETRON [Suspect]
     Dates: start: 20111109
  16. CYTARABINE [Suspect]
     Route: 042
     Dates: start: 20111219, end: 20111220
  17. KIDROLASE [Suspect]
     Dates: start: 20111114
  18. DEXAMETHASONE [Suspect]
     Indication: PRODUCT USED FOR UNKNOWN INDICATION
     Route: 048
     Dates: start: 20111107
  19. ONDANSETRON [Suspect]
     Dates: start: 20111114
  20. METHOTREXATE [Suspect]
     Indication: PRODUCT USED FOR UNKNOWN INDICATION
     Route: 037
     Dates: start: 20111108
  21. CYTARABINE [Suspect]
     Route: 037
     Dates: start: 20111108
  22. KIDROLASE [Suspect]
     Dates: start: 20111116
  23. ETOPOSIDE [Suspect]
     Dates: start: 20111219
  24. DOXORUBICIN HCL [Suspect]
     Dates: start: 20111114
  25. ELDISINE [Suspect]
     Dates: start: 20111121
  26. ONDANSETRON [Suspect]
     Indication: PRODUCT USED FOR UNKNOWN INDICATION
     Route: 042
     Dates: start: 20111207, end: 20111220
  27. METHOTREXATE [Suspect]
     Route: 037
     Dates: start: 20111207
  28. DEPO-MEDROL [Suspect]
     Indication: PRODUCT USED FOR UNKNOWN INDICATION
     Route: 037
     Dates: start: 20111108
  29. ONDANSETRON [Suspect]
     Dates: start: 20111116
  30. ONDANSETRON [Suspect]
     Dates: start: 20111121
  31. ONDANSETRON [Suspect]
     Dates: start: 20111205
  32. THIOGUANINE [Suspect]
     Indication: PRODUCT USED FOR UNKNOWN INDICATION
     Route: 048
     Dates: start: 20111206, end: 20111221
  33. THIOGUANINE [Suspect]
     Dates: start: 20111206, end: 20111221
  34. CYTARABINE [Suspect]
     Route: 042
     Dates: start: 20111212, end: 20111213
  35. KIDROLASE [Suspect]
     Dates: start: 20111121
  36. DOXORUBICIN HCL [Suspect]
     Dates: start: 20111121
  37. DEPO-MEDROL [Suspect]
     Dates: start: 20111207

REACTIONS (1)
  - VENOOCCLUSIVE LIVER DISEASE [None]
